FAERS Safety Report 16852179 (Version 2)
Quarter: 2019Q3

REPORT INFORMATION
  Report Type: Spontaneous
  Country: BO (occurrence: BO)
  Receive Date: 20190925
  Receipt Date: 20190928
  Transmission Date: 20191005
  Serious: Yes (Death, Other)
  Sender: FDA-Public Use
  Company Number: PHHY2019BO222432

PATIENT
  Age: 68 Year
  Sex: Male

DRUGS (2)
  1. TASIGNA [Suspect]
     Active Substance: NILOTINIB
     Indication: CHRONIC MYELOID LEUKAEMIA
     Dosage: 400 MG, BID
     Route: 065
     Dates: start: 20180414
  2. PREGABALIN. [Concomitant]
     Active Substance: PREGABALIN
     Indication: NEUROPATHY PERIPHERAL
     Dosage: 75 MG, QD
     Route: 065

REACTIONS (3)
  - Myocardial infarction [Fatal]
  - Renal tubular disorder [Unknown]
  - Ischaemia [Fatal]

NARRATIVE: CASE EVENT DATE: 20190915
